FAERS Safety Report 8247807-0 (Version None)
Quarter: 2012Q1

REPORT INFORMATION
  Report Type: 
  Country: None (occurrence: None)
  Receive Date: 20120330
  Receipt Date: 20120324
  Transmission Date: 20120608
  Serious: Yes (Other)
  Sender: FDA-Public Use
  Company Number: US-BAYER-2012-029597

PATIENT

DRUGS (1)
  1. LIDOCAINE HCL [Suspect]
     Route: 047

REACTIONS (1)
  - BLINDNESS [None]
